FAERS Safety Report 9563648 (Version 2)
Quarter: 2013Q4

REPORT INFORMATION
  Report Type: Spontaneous
  Country: RO (occurrence: None)
  Receive Date: 20130926
  Receipt Date: 20131009
  Transmission Date: 20140711
  Serious: Yes (Hospitalization, Other)
  Sender: FDA-Public Use
  Company Number: SYM-2013-10884

PATIENT
  Age: 81 Year
  Sex: Female

DRUGS (6)
  1. DILTIAZEM [Suspect]
     Indication: SUICIDE ATTEMPT
     Dosage: 96 DOSAGE FORMS, ORAL
     Route: 048
  2. DILTIAZEM [Suspect]
     Indication: HYPERTENSION
     Dosage: 96 DOSAGE FORMS, ORAL
     Route: 048
  3. DILTIAZEM [Suspect]
     Indication: MYOCARDIAL ISCHAEMIA
     Dosage: 96 DOSAGE FORMS, ORAL
     Route: 048
  4. INDAPAMIDE [Suspect]
     Indication: SUICIDE ATTEMPT
     Dosage: 16 DOSAGE FORMS
  5. INDAPAMIDE [Suspect]
     Indication: HYPERTENSION
     Dosage: 16 DOSAGE FORMS
  6. INDAPAMIDE [Suspect]
     Indication: MYOCARDIAL ISCHAEMIA
     Dosage: 16 DOSAGE FORMS

REACTIONS (7)
  - Suicide attempt [None]
  - Loss of consciousness [None]
  - Blood pressure systolic increased [None]
  - Overdose [None]
  - Cardiovascular disorder [None]
  - Sinus bradycardia [None]
  - Atrioventricular block second degree [None]
